FAERS Safety Report 4471605-7 (Version None)
Quarter: 2004Q4

REPORT INFORMATION
  Report Type: 
  Country: None (occurrence: None)
  Receive Date: 20041012
  Receipt Date: 20041004
  Transmission Date: 20050328
  Serious: Yes (Other)
  Sender: FDA-Public Use
  Company Number: DE-GLAXOSMITHKLINE-D0044907A

PATIENT

DRUGS (2)
  1. LAMICTAL [Suspect]
     Indication: EPILEPSY
     Route: 048
  2. VALPROATE SODIUM [Concomitant]
     Indication: EPILEPSY
     Route: 065

REACTIONS (1)
  - RHABDOMYOLYSIS [None]
